FAERS Safety Report 22196208 (Version 7)
Quarter: 2025Q1

REPORT INFORMATION
  Report Type: Report from Study
  Country: CA (occurrence: CA)
  Receive Date: 20230411
  Receipt Date: 20250228
  Transmission Date: 20250409
  Serious: Yes (Hospitalization, Disabling)
  Sender: BIOCON
  Company Number: CA-MYLANLABS-2023M1037551

PATIENT

DRUGS (3)
  1. HULIO [Suspect]
     Active Substance: ADALIMUMAB-FKJP
     Indication: Psoriatic arthropathy
     Route: 058
     Dates: start: 20220412
  2. HULIO [Suspect]
     Active Substance: ADALIMUMAB-FKJP
     Route: 058
     Dates: start: 20230518
  3. HULIO [Suspect]
     Active Substance: ADALIMUMAB-FKJP
     Route: 058

REACTIONS (7)
  - Hospitalisation [Unknown]
  - Loss of personal independence in daily activities [Unknown]
  - Fibromyalgia [Unknown]
  - C-reactive protein increased [Unknown]
  - Product dose omission issue [Unknown]
  - Inappropriate schedule of product administration [Unknown]
  - Product supply issue [Unknown]

NARRATIVE: CASE EVENT DATE: 20250109
